FAERS Safety Report 5594042-0 (Version None)
Quarter: 2008Q1

REPORT INFORMATION
  Report Type: 
  Country: None (occurrence: None)
  Receive Date: 20080116
  Receipt Date: 20080109
  Transmission Date: 20080703
  Serious: Yes (Hospitalization)
  Sender: FDA-Public Use
  Company Number: JP-MERCK-0801USA01854

PATIENT
  Age: 79 Year
  Sex: Male

DRUGS (8)
  1. FOSAMAX [Suspect]
     Indication: OSTEOPOROSIS
     Route: 048
     Dates: end: 20071220
  2. ZOPICOOL [Concomitant]
     Indication: INSOMNIA
     Route: 048
  3. CALCIUM ASPARTATE [Concomitant]
     Indication: OSTEOPOROSIS
     Route: 048
  4. VITAMEDIN [Concomitant]
     Indication: SWELLING
     Route: 048
  5. SORELMON [Concomitant]
     Indication: BACK PAIN
     Route: 048
  6. ALFACALCIDOL [Concomitant]
     Indication: OSTEOPOROSIS
     Route: 048
  7. SELBEX [Concomitant]
     Indication: GASTRITIS
     Route: 048
  8. NEUROTROPIN [Concomitant]
     Indication: BACK PAIN
     Route: 048

REACTIONS (3)
  - DRUG ADMINISTRATION ERROR [None]
  - GASTRIC ULCER HAEMORRHAGE [None]
  - OEDEMA PERIPHERAL [None]
